FAERS Safety Report 4608852-7 (Version None)
Quarter: 2005Q1

REPORT INFORMATION
  Report Type: 
  Country: None (occurrence: None)
  Receive Date: 20050315
  Receipt Date: 20050308
  Transmission Date: 20050727
  Serious: Yes (Hospitalization)
  Sender: FDA-Public Use
  Company Number: FRPFM-E-20050028

PATIENT
  Age: 71 Year
  Sex: Female

DRUGS (4)
  1. CIBLOR [Suspect]
     Indication: BRONCHITIS
     Dosage: 1TAB PER DAY
     Route: 048
     Dates: start: 20050103, end: 20050103
  2. INDAPAMIDE [Concomitant]
     Indication: ESSENTIAL HYPERTENSION
     Dosage: 2.5MG UNKNOWN
     Route: 065
  3. BISOPROLOL FUMARATE [Concomitant]
     Indication: BRONCHITIS
     Dosage: 10MG UNKNOWN
     Route: 065
  4. SPIRONOLACTONE [Concomitant]
     Indication: ESSENTIAL HYPERTENSION
     Dosage: 75MG UNKNOWN
     Route: 065

REACTIONS (5)
  - DRUG INEFFECTIVE [None]
  - DYSPNOEA [None]
  - HYPERSENSITIVITY [None]
  - RALES [None]
  - RASH [None]
